FAERS Safety Report 5135300-3 (Version None)
Quarter: 2006Q4

REPORT INFORMATION
  Report Type: 
  Country: None (occurrence: None)
  Receive Date: 20061026
  Receipt Date: 20061018
  Transmission Date: 20070319
  Serious: Yes (Other)
  Sender: FDA-Public Use
  Company Number: JP-BAYER-200611140BYL

PATIENT
  Age: 43 Year
  Sex: Male

DRUGS (2)
  1. CIPROFLOXACIN [Suspect]
     Indication: NASOPHARYNGITIS
     Dosage: TOTAL DAILY DOSE: 300 MG  UNIT DOSE: 100 MG
     Route: 048
     Dates: start: 20060201, end: 20060201
  2. LOXONIN [Suspect]
     Indication: NASOPHARYNGITIS
     Route: 048
     Dates: start: 20060201

REACTIONS (1)
  - OCULOMUCOCUTANEOUS SYNDROME [None]
